FAERS Safety Report 4647651-7 (Version None)
Quarter: 2005Q2

REPORT INFORMATION
  Report Type: 
  Country: None (occurrence: None)
  Receive Date: 20050427
  Receipt Date: 20050427
  Transmission Date: 20051028
  Serious: Yes (Life-Threatening, Hospitalization)
  Sender: FDA-Public Use
  Company Number: None

PATIENT
  Age: 83 Year
  Sex: Female
  Weight: 62.9593 kg

DRUGS (11)
  1. LASIX [Suspect]
     Indication: CARDIAC FAILURE CONGESTIVE
  2. ASPIRIN [Concomitant]
  3. DETROL LA [Concomitant]
  4. FLOMAX [Concomitant]
  5. HYZAAR [Concomitant]
  6. PLAVIX [Concomitant]
  7. REMERON [Concomitant]
  8. B12 [Concomitant]
  9. ISORDIL [Concomitant]
  10. PROTONIX [Concomitant]
  11. REMINYL [Concomitant]

REACTIONS (8)
  - CARDIAC FAILURE CONGESTIVE [None]
  - CONDITION AGGRAVATED [None]
  - CONFUSIONAL STATE [None]
  - DEMENTIA [None]
  - ELECTROLYTE IMBALANCE [None]
  - NAUSEA [None]
  - POLLAKIURIA [None]
  - VOMITING [None]
